FAERS Safety Report 19596965 (Version 2)
Quarter: 2021Q3

REPORT INFORMATION
  Report Type: Report from Study
  Country: IT (occurrence: IT)
  Receive Date: 20210722
  Receipt Date: 20210810
  Transmission Date: 20211014
  Serious: Yes (Other)
  Sender: FDA-Public Use
  Company Number: IT-TAKEDA-2021TUS044725

PATIENT
  Age: 18 Year
  Sex: Male

DRUGS (17)
  1. ADVATE [Suspect]
     Active Substance: ANTIHEMOPHILIC FACTOR, HUMAN RECOMBINANT
     Indication: TOOTH EXTRACTION
     Dosage: 4000 INTERNATIONAL UNIT, SINGLE
     Route: 065
     Dates: start: 2013, end: 2013
  2. ADVATE [Suspect]
     Active Substance: ANTIHEMOPHILIC FACTOR, HUMAN RECOMBINANT
     Dosage: 2000 INTERNATIONAL UNIT, QD
     Route: 065
     Dates: start: 20200501, end: 20200509
  3. ADVATE [Suspect]
     Active Substance: ANTIHEMOPHILIC FACTOR, HUMAN RECOMBINANT
     Indication: HAEMATURIA
     Dosage: 2000 INTERNATIONAL UNIT
     Route: 065
     Dates: start: 201603, end: 201603
  4. ADVATE [Suspect]
     Active Substance: ANTIHEMOPHILIC FACTOR, HUMAN RECOMBINANT
     Dosage: 2000 INTERNATIONAL UNIT, QD
     Route: 065
     Dates: start: 20200501, end: 20200509
  5. ADVATE [Suspect]
     Active Substance: ANTIHEMOPHILIC FACTOR, HUMAN RECOMBINANT
     Dosage: 2000 INTERNATIONAL UNIT, QD
     Route: 065
     Dates: start: 20200501, end: 20200509
  6. ETORICOXIB. [Concomitant]
     Active Substance: ETORICOXIB
     Indication: MUSCULOSKELETAL PAIN
     Dosage: 60 MILLIGRAM
     Route: 065
     Dates: start: 20160226
  7. ADVATE [Suspect]
     Active Substance: ANTIHEMOPHILIC FACTOR, HUMAN RECOMBINANT
     Indication: TOOTH EXTRACTION
     Dosage: 4000 INTERNATIONAL UNIT, SINGLE
     Route: 065
     Dates: start: 2013, end: 2013
  8. ADVATE [Suspect]
     Active Substance: ANTIHEMOPHILIC FACTOR, HUMAN RECOMBINANT
     Indication: HAEMATURIA
     Dosage: 2000 INTERNATIONAL UNIT
     Route: 065
     Dates: start: 201603, end: 201603
  9. PARACETAMOLO [Concomitant]
     Active Substance: ACETAMINOPHEN
     Indication: GROIN PAIN
     Dosage: 500 MILLIGRAM,PRN
     Route: 065
     Dates: end: 2015
  10. ADVATE [Suspect]
     Active Substance: ANTIHEMOPHILIC FACTOR, HUMAN RECOMBINANT
     Indication: TOOTH EXTRACTION
     Dosage: 4000 INTERNATIONAL UNIT, SINGLE
     Route: 065
     Dates: start: 2013, end: 2013
  11. ADVATE [Suspect]
     Active Substance: ANTIHEMOPHILIC FACTOR, HUMAN RECOMBINANT
     Indication: PERIARTHRITIS
     Dosage: 2000 INTERNATIONAL UNIT
     Route: 065
     Dates: start: 2013, end: 2013
  12. ADVATE [Suspect]
     Active Substance: ANTIHEMOPHILIC FACTOR, HUMAN RECOMBINANT
     Indication: PERIARTHRITIS
     Dosage: 2000 INTERNATIONAL UNIT
     Route: 065
     Dates: start: 2013, end: 2013
  13. ADVATE [Suspect]
     Active Substance: ANTIHEMOPHILIC FACTOR, HUMAN RECOMBINANT
     Indication: HAEMATURIA
     Dosage: 2000 INTERNATIONAL UNIT
     Route: 065
     Dates: start: 201603, end: 201603
  14. TRAMADOL. [Concomitant]
     Active Substance: TRAMADOL
     Indication: PAIN
     Dosage: PRN
     Dates: start: 20151005
  15. TRANEXAMIC ACID. [Concomitant]
     Active Substance: TRANEXAMIC ACID
     Indication: TOOTH EXTRACTION
     Dosage: 1 DOSAGE FORM, TID
     Route: 065
     Dates: start: 2013, end: 2013
  16. PARACETAMOLO [Concomitant]
     Active Substance: ACETAMINOPHEN
     Indication: MUSCULOSKELETAL PAIN
     Dosage: 500 MILLIGRAM
     Dates: start: 20160226
  17. ADVATE [Suspect]
     Active Substance: ANTIHEMOPHILIC FACTOR, HUMAN RECOMBINANT
     Indication: PERIARTHRITIS
     Dosage: 2000 INTERNATIONAL UNIT
     Route: 065
     Dates: start: 2013, end: 2013

REACTIONS (7)
  - Arthralgia [Recovered/Resolved]
  - Sciatica [Recovered/Resolved]
  - Neck pain [Recovered/Resolved]
  - Haematuria [Recovered/Resolved]
  - Musculoskeletal pain [Recovered/Resolved]
  - Groin pain [Recovered/Resolved]
  - Dental discomfort [Recovered/Resolved]

NARRATIVE: CASE EVENT DATE: 201602
